FAERS Safety Report 4404142-6 (Version None)
Quarter: 2004Q3

REPORT INFORMATION
  Report Type: 
  Country: None (occurrence: None)
  Receive Date: 20040719
  Receipt Date: 20040702
  Transmission Date: 20050211
  Serious: Yes (Hospitalization)
  Sender: FDA-Public Use
  Company Number: 2004-0007221

PATIENT
  Age: 64 Year
  Sex: Female

DRUGS (1)
  1. ADEFOVIR DIPIVOXIL (ADEFOVIR DIPIVOXIL) [Suspect]
     Indication: HEPATITIS B
     Dosage: 10 MG, 1 IN 48 HR, ORAL
     Route: 048
     Dates: start: 20040614

REACTIONS (1)
  - HYPERGLYCAEMIA [None]
